FAERS Safety Report 7208756-X (Version None)
Quarter: 2011Q1

REPORT INFORMATION
  Report Type: 
  Country: None (occurrence: None)
  Receive Date: 20110104
  Receipt Date: 20101230
  Transmission Date: 20110831
  Serious: Yes (Other)
  Sender: FDA-Public Use
  Company Number: BR-PFIZER INC-2010181657

PATIENT
  Sex: Female
  Weight: 60 kg

DRUGS (2)
  1. CHAMPIX [Suspect]
     Indication: TOBACCO USER
     Dosage: 0.5 MG, 1X/DAY
     Route: 048
  2. ESTRADIOL/GESTODENE [Concomitant]
     Indication: CONTRACEPTION
     Dosage: UNK

REACTIONS (6)
  - BLOOD PRESSURE INCREASED [None]
  - RETCHING [None]
  - MALAISE [None]
  - VOMITING [None]
  - PALLOR [None]
  - ABDOMINAL DISTENSION [None]
